FAERS Safety Report 24638477 (Version 1)
Quarter: 2024Q4

REPORT INFORMATION
  Report Type: Spontaneous
  Country: US (occurrence: None)
  Receive Date: 20241119
  Receipt Date: 20241119
  Transmission Date: 20250115
  Serious: Yes (Hospitalization)
  Sender: Public
  Company Number: None

PATIENT
  Age: 77 Year
  Sex: Male
  Weight: 58 kg

DRUGS (1)
  1. AZATHIOPRINE [Suspect]
     Active Substance: AZATHIOPRINE
     Indication: Immune-mediated myositis

REACTIONS (4)
  - Gastrointestinal haemorrhage [None]
  - Pancytopenia [None]
  - Thrombocytopenia [None]
  - Asthenia [None]

NARRATIVE: CASE EVENT DATE: 20240815
